FAERS Safety Report 18489275 (Version 1)
Quarter: 2020Q4

REPORT INFORMATION
  Report Type: Spontaneous
  Country: US (occurrence: US)
  Receive Date: 20201110
  Receipt Date: 20201110
  Transmission Date: 20210114
  Serious: Yes (Other)
  Sender: FDA-Public Use
  Company Number: None

PATIENT
  Age: 37 Year
  Sex: Male
  Weight: 82.1 kg

DRUGS (1)
  1. ARMODAFINIL. [Suspect]
     Active Substance: ARMODAFINIL
     Indication: SLEEP DISORDER
     Route: 048
     Dates: start: 20200930

REACTIONS (2)
  - Hypersomnia [None]
  - Product substitution issue [None]

NARRATIVE: CASE EVENT DATE: 20200930
